FAERS Safety Report 6919687-4 (Version None)
Quarter: 2010Q3

REPORT INFORMATION
  Report Type: 
  Country: None (occurrence: None)
  Receive Date: 20100811
  Receipt Date: 20100802
  Transmission Date: 20110219
  Serious: Yes (Hospitalization)
  Sender: FDA-Public Use
  Company Number: US-ROCHE-716653

PATIENT
  Age: 76 Year
  Sex: Female

DRUGS (5)
  1. BEVACIZUMAB [Suspect]
     Indication: OVARIAN CANCER
     Dosage: FORM AND DOSE: UNKNOWN
     Route: 042
     Dates: start: 20100617
  2. DOCETAXEL [Suspect]
     Indication: OVARIAN CANCER
     Dosage: FORM AND DOSE: UNKNOWN
     Route: 042
     Dates: start: 20100527
  3. DOCETAXEL [Suspect]
     Route: 042
     Dates: start: 20100617
  4. COUMADIN [Concomitant]
     Indication: ATRIAL FIBRILLATION
     Dates: end: 20100513
  5. ASPIRIN [Concomitant]
     Indication: ATRIAL FIBRILLATION
     Dates: end: 20100513

REACTIONS (3)
  - APHASIA [None]
  - CONFUSIONAL STATE [None]
  - HEMIPARESIS [None]
